FAERS Safety Report 7369995-0 (Version None)
Quarter: 2011Q1

REPORT INFORMATION
  Report Type: 
  Country: None (occurrence: None)
  Receive Date: 20110323
  Receipt Date: 20110309
  Transmission Date: 20110831
  Serious: Yes (Hospitalization)
  Sender: FDA-Public Use
  Company Number: PHHY2011JP01051

PATIENT
  Sex: Male
  Weight: 52 kg

DRUGS (9)
  1. ADALAT [Concomitant]
     Dosage: 40 MG, UNK
  2. DIOVAN [Suspect]
     Indication: HYPERTENSION
     Dosage: 80 MG, UNK
     Route: 048
  3. CALBLOCK [Concomitant]
     Dosage: 16 MG, UNK
  4. ADALAT [Concomitant]
     Dosage: 20 MG, UNK
  5. ADALAT [Concomitant]
     Dosage: 80 MG, UNK
  6. DIOVAN [Suspect]
     Dosage: 160 MG, UNK
     Route: 048
     Dates: start: 20080101
  7. MAINTATE [Concomitant]
     Dosage: 5 MG, UNK
  8. DIOVAN [Suspect]
     Dosage: 80 MG, UNK
     Route: 048
     Dates: end: 20090529
  9. LASIX [Suspect]
     Dosage: 20 MG, UNK

REACTIONS (5)
  - DECREASED APPETITE [None]
  - MALAISE [None]
  - PRURITUS [None]
  - RENAL IMPAIRMENT [None]
  - OEDEMA PERIPHERAL [None]
